FAERS Safety Report 5749464-1 (Version None)
Quarter: 2008Q2

REPORT INFORMATION
  Report Type: 
  Country: None (occurrence: None)
  Receive Date: 20080527
  Receipt Date: 20080516
  Transmission Date: 20081010
  Serious: Yes (Life-Threatening, Hospitalization)
  Sender: FDA-Public Use
  Company Number: A0725452A

PATIENT
  Age: 78 Year
  Sex: Male
  Weight: 109.1 kg

DRUGS (11)
  1. ADVAIR DISKUS 100/50 [Suspect]
     Indication: CHRONIC OBSTRUCTIVE PULMONARY DISEASE
     Dosage: 1PUFF TWICE PER DAY
     Route: 055
     Dates: start: 20030101
  2. PREVACID [Concomitant]
     Indication: DRUG USE FOR UNKNOWN INDICATION
  3. QUININE [Concomitant]
     Indication: DRUG USE FOR UNKNOWN INDICATION
     Dosage: 200MG CUMULATIVE DOSE
  4. ALLOPURINOL [Concomitant]
     Indication: DRUG USE FOR UNKNOWN INDICATION
  5. SIMVASTATIN [Concomitant]
     Indication: DRUG USE FOR UNKNOWN INDICATION
  6. AMIODARONE [Concomitant]
     Indication: DRUG USE FOR UNKNOWN INDICATION
     Dosage: 200MG UNKNOWN
  7. NORVASC [Concomitant]
     Indication: DRUG USE FOR UNKNOWN INDICATION
     Dosage: 5MG UNKNOWN
  8. WARFARIN SODIUM [Concomitant]
     Indication: DRUG USE FOR UNKNOWN INDICATION
  9. ATACAND [Concomitant]
     Indication: DRUG USE FOR UNKNOWN INDICATION
     Dosage: 16MG UNKNOWN
  10. SPIRIVA [Concomitant]
     Indication: DRUG USE FOR UNKNOWN INDICATION
     Dosage: 18MCG UNKNOWN
  11. NORVASC [Concomitant]
     Dosage: 5MG UNKNOWN

REACTIONS (2)
  - CEREBROVASCULAR ACCIDENT [None]
  - PNEUMONIA [None]
